FAERS Safety Report 6903751-X (Version None)
Quarter: 2010Q3

REPORT INFORMATION
  Report Type: 
  Country: None (occurrence: None)
  Receive Date: 20100804
  Receipt Date: 20081209
  Transmission Date: 20110219
  Serious: No
  Sender: FDA-Public Use
  Company Number: US-PFIZER INC-2008151627

PATIENT
  Age: 33 Year
  Sex: Male

DRUGS (1)
  1. LYRICA [Suspect]
     Dosage: 75MG/DAY
     Dates: end: 20081104

REACTIONS (2)
  - HEADACHE [None]
  - VISION BLURRED [None]
